FAERS Safety Report 9352487 (Version 2)
Quarter: 2013Q4

REPORT INFORMATION
  Report Type: Spontaneous
  Country: US (occurrence: US)
  Receive Date: 20130617
  Receipt Date: 20131126
  Transmission Date: 20140711
  Serious: Yes (Hospitalization)
  Sender: FDA-Public Use
  Company Number: US-B.I. PHARMACEUTICALS,INC./RIDGEFIELD-2013-BI-16738BP

PATIENT
  Sex: Female
  Weight: 58.97 kg

DRUGS (12)
  1. PRADAXA [Suspect]
     Indication: ATRIAL FIBRILLATION
     Dosage: 300 MG
     Route: 048
     Dates: start: 20111216, end: 20120315
  2. PRADAXA [Suspect]
     Indication: DEEP VEIN THROMBOSIS
  3. CONTINUOUS OXYGEN [Concomitant]
  4. PROTONIX [Concomitant]
     Dosage: 30 MG
     Route: 048
  5. SINGULAIR [Concomitant]
     Dosage: 10 MG
     Route: 048
  6. COLACE [Concomitant]
     Dosage: 200 MG
     Route: 048
  7. DUONEB [Concomitant]
  8. LEVAQUIN [Concomitant]
     Dosage: 500 MG
     Route: 048
  9. NEXIUM [Concomitant]
     Dosage: 140 MG
     Route: 048
  10. PREDNISONE [Concomitant]
     Dosage: 40 MG
     Route: 048
  11. VERAPAMIL [Concomitant]
     Dosage: 150 MG
     Route: 048
  12. VICODIN [Concomitant]

REACTIONS (3)
  - Lower gastrointestinal haemorrhage [Unknown]
  - Rectal fissure [Unknown]
  - Haemorrhagic anaemia [Unknown]
